FAERS Safety Report 10596632 (Version 2)
Quarter: 2014Q4

REPORT INFORMATION
  Report Type: Spontaneous
  Country: US (occurrence: US)
  Receive Date: 20141120
  Receipt Date: 20141205
  Transmission Date: 20150529
  Serious: Yes (Other)
  Sender: FDA-Public Use
  Company Number: CHPA2014US015383

PATIENT
  Age: 41 Year
  Sex: Female

DRUGS (13)
  1. MAALOX ANTACID [Suspect]
     Active Substance: ALUMINUM HYDROXIDE\DIMETHICONE\MAGNESIUM HYDROXIDE
     Indication: ABDOMINAL DISTENSION
  2. GAS-X [Suspect]
     Active Substance: DIMETHICONE
     Indication: DYSPEPSIA
  3. MAALOX ANTACID [Suspect]
     Active Substance: ALUMINUM HYDROXIDE\DIMETHICONE\MAGNESIUM HYDROXIDE
     Indication: DYSPEPSIA
  4. MAALOX ANTACID [Suspect]
     Active Substance: ALUMINUM HYDROXIDE\DIMETHICONE\MAGNESIUM HYDROXIDE
     Indication: OFF LABEL USE
  5. GAS-X [Suspect]
     Active Substance: DIMETHICONE
     Indication: HERNIA
     Dosage: UNK
     Route: 048
  6. MAALOX ANTACID [Suspect]
     Active Substance: ALUMINUM HYDROXIDE\DIMETHICONE\MAGNESIUM HYDROXIDE
     Indication: HERNIA
     Dosage: 2 DF, UNK
     Route: 048
  7. MAALOX ANTACID [Suspect]
     Active Substance: ALUMINUM HYDROXIDE\DIMETHICONE\MAGNESIUM HYDROXIDE
     Indication: ABDOMINAL DISCOMFORT
  8. MAALOX ANTACID [Suspect]
     Active Substance: ALUMINUM HYDROXIDE\DIMETHICONE\MAGNESIUM HYDROXIDE
     Indication: ABDOMINAL DISTENSION
  9. MAALOX ANTACID [Suspect]
     Active Substance: ALUMINUM HYDROXIDE\DIMETHICONE\MAGNESIUM HYDROXIDE
     Indication: HERNIA
     Dosage: 3 TSP, UNK
     Route: 048
     Dates: start: 1988
  10. MAALOX ANTACID [Suspect]
     Active Substance: ALUMINUM HYDROXIDE\DIMETHICONE\MAGNESIUM HYDROXIDE
     Indication: ABDOMINAL DISCOMFORT
  11. GAS-X [Suspect]
     Active Substance: DIMETHICONE
     Indication: OFF LABEL USE
  12. MAALOX ANTACID [Suspect]
     Active Substance: ALUMINUM HYDROXIDE\DIMETHICONE\MAGNESIUM HYDROXIDE
     Indication: DYSPEPSIA
     Dosage: 2 DF, UNK
     Route: 048
     Dates: start: 1988
  13. MAALOX ANTACID [Suspect]
     Active Substance: ALUMINUM HYDROXIDE\DIMETHICONE\MAGNESIUM HYDROXIDE
     Indication: OFF LABEL USE

REACTIONS (6)
  - Inappropriate schedule of drug administration [Unknown]
  - Gastric disorder [Not Recovered/Not Resolved]
  - Expired product administered [Unknown]
  - Cholelithiasis [Recovered/Resolved]
  - Therapeutic response unexpected [Unknown]
  - Drug ineffective for unapproved indication [Unknown]

NARRATIVE: CASE EVENT DATE: 1988
